FAERS Safety Report 15118852 (Version 1)
Quarter: 2018Q3

REPORT INFORMATION
  Report Type: Spontaneous
  Country: US (occurrence: US)
  Receive Date: 20180709
  Receipt Date: 20180709
  Transmission Date: 20181010
  Serious: No
  Sender: FDA-Public Use
  Company Number: US-TEVA-2018-US-921827

PATIENT
  Age: 4 Year
  Sex: Male

DRUGS (2)
  1. CEFALEXIN [Suspect]
     Active Substance: CEPHALEXIN
     Indication: SUBCUTANEOUS ABSCESS
     Dosage: THRICE A DAY
     Route: 065
  2. MUPIROCIN. [Suspect]
     Active Substance: MUPIROCIN
     Indication: SUBCUTANEOUS ABSCESS
     Route: 065

REACTIONS (2)
  - Vomiting [Unknown]
  - Abdominal pain [Unknown]
